FAERS Safety Report 5804106-1 (Version None)
Quarter: 2008Q3

REPORT INFORMATION
  Report Type: 
  Country: None (occurrence: None)
  Receive Date: 20080707
  Receipt Date: 20080707
  Transmission Date: 20090109
  Serious: Yes (Hospitalization)
  Sender: FDA-Public Use
  Company Number: None

PATIENT
  Age: 47 Year
  Sex: Female
  Weight: 95 kg

DRUGS (1)
  1. SULFAMETHOXAZOLE AND TRIMETHOPRIM [Suspect]
     Indication: SUBCUTANEOUS ABSCESS
     Dosage: 800-160  TWICE A DAY PO
     Route: 048
     Dates: start: 20080501, end: 20080508

REACTIONS (2)
  - FACE OEDEMA [None]
  - FLUSHING [None]
